FAERS Safety Report 11614604 (Version 1)
Quarter: 2015Q4

REPORT INFORMATION
  Report Type: Spontaneous
  Country: US (occurrence: US)
  Receive Date: 20151009
  Receipt Date: 20151009
  Transmission Date: 20160304
  Serious: No
  Sender: FDA-Public Use
  Company Number: US-ASTRAZENECA-2015SE92690

PATIENT
  Age: 25383 Day
  Sex: Female
  Weight: 80.7 kg

DRUGS (1)
  1. BYETTA [Suspect]
     Active Substance: EXENATIDE
     Indication: TYPE 2 DIABETES MELLITUS
     Route: 058

REACTIONS (6)
  - Glaucoma [Unknown]
  - Underdose [Unknown]
  - Drug dose omission [Unknown]
  - Blood glucose increased [Unknown]
  - Visual impairment [Unknown]
  - Product quality issue [Unknown]

NARRATIVE: CASE EVENT DATE: 20150920
